FAERS Safety Report 14813797 (Version 1)
Quarter: 2018Q2

REPORT INFORMATION
  Report Type: Spontaneous
  Country: US (occurrence: US)
  Receive Date: 20180426
  Receipt Date: 20180426
  Transmission Date: 20180711
  Serious: No
  Sender: FDA-Public Use
  Company Number: US-PFIZER INC-2018163970

PATIENT
  Age: 63 Year
  Sex: Female
  Weight: 79.82 kg

DRUGS (12)
  1. TOPAMAX [Concomitant]
     Active Substance: TOPIRAMATE
     Dosage: 200 MG, 2X/DAY
     Route: 048
  2. GABAPENTIN. [Concomitant]
     Active Substance: GABAPENTIN
     Dosage: 300 MG, 2X/DAY
     Route: 048
  3. CRESTOR [Concomitant]
     Active Substance: ROSUVASTATIN CALCIUM
     Dosage: 10 MG, DAILY
     Route: 048
  4. METFORMIN [Concomitant]
     Active Substance: METFORMIN HYDROCHLORIDE
     Dosage: 500 MG, 2X/DAY(2 TIMES EVERY DAY WITH MORNING AND EVENING MEALS)
     Route: 048
  5. SYNTHROID [Concomitant]
     Active Substance: LEVOTHYROXINE SODIUM
     Dosage: 200 UG, DAILY
     Route: 048
  6. SKELAXIN [Concomitant]
     Active Substance: METAXALONE
     Dosage: 800 MG, AS NEEDED (1 TABLET BY ORAL ROUTE 3 TIMES EVERY DAY)
     Route: 048
  7. HUMIRA [Concomitant]
     Active Substance: ADALIMUMAB
     Dosage: 40 MG, UNK
  8. AVINZA [Concomitant]
     Active Substance: MORPHINE SULFATE
     Dosage: UNK
  9. CELEBREX [Suspect]
     Active Substance: CELECOXIB
     Indication: PSORIATIC ARTHROPATHY
     Dosage: 200 MG, AS NEEDED(1 CAPSULE BY ORAL ROUTE 2 TIMES EVERY DAY)
     Route: 048
  10. INVOKANA [Concomitant]
     Active Substance: CANAGLIFLOZIN
     Dosage: 100 MG, 1X/DAY (EVERY DAY BEFORE THE FIRST MEAL OF THE DAY)
     Route: 048
  11. COSENTYX [Concomitant]
     Active Substance: SECUKINUMAB
     Dosage: 300 MG, UNK (1 PEN SUB-Q EVERY 4 WEEKS IN THE ABDOMEN THIGH OR OUTER AREA OF UPPER ARM  ROTATE SITE)
     Route: 058
  12. PLAVIX [Concomitant]
     Active Substance: CLOPIDOGREL BISULFATE
     Dosage: 75 MG, DAILY
     Route: 048

REACTIONS (2)
  - Rash [Unknown]
  - Drug ineffective for unapproved indication [Unknown]
